FAERS Safety Report 7935379-7 (Version None)
Quarter: 2011Q4

REPORT INFORMATION
  Report Type: 
  Country: None (occurrence: None)
  Receive Date: 20111122
  Receipt Date: 20111116
  Transmission Date: 20120403
  Serious: Yes (Hospitalization)
  Sender: FDA-Public Use
  Company Number: GR-B.I. PHARMACEUTICALS,INC./RIDGEFIELD-2011-EU-00536GB

PATIENT
  Age: 74 Year
  Sex: Male

DRUGS (6)
  1. SALOSPIR [Concomitant]
     Indication: MYOCARDIAL ISCHAEMIA
  2. SALOSPIR [Concomitant]
     Indication: CORONARY ARTERY DISEASE
     Dosage: 100 MG
  3. LOPRESSOR [Concomitant]
     Indication: HYPERTENSION
  4. OLMESARTAN MEDOXOMIL AND HYDROCHLOROTHIZIDE [Concomitant]
     Indication: HYPERTENSION
  5. PRADAXA [Suspect]
     Indication: ATRIAL FIBRILLATION
     Dosage: 220 MG
     Route: 048
     Dates: start: 20111001, end: 20111101
  6. NORVASC [Concomitant]
     Indication: HYPERTENSION

REACTIONS (4)
  - CONFUSIONAL STATE [None]
  - CEREBRAL HAEMORRHAGE [None]
  - INTRAVENTRICULAR HAEMORRHAGE [None]
  - DEPRESSED LEVEL OF CONSCIOUSNESS [None]
